FAERS Safety Report 22065624 (Version 1)
Quarter: 2023Q1

REPORT INFORMATION
  Report Type: Spontaneous
  Country: CA (occurrence: CA)
  Receive Date: 20230306
  Receipt Date: 20230306
  Transmission Date: 20230418
  Serious: Yes (Hospitalization)
  Sender: FDA-Public Use
  Company Number: CA-PFIZER INC-2020147459

PATIENT
  Age: 63 Year
  Sex: Male

DRUGS (2)
  1. BOSULIF [Suspect]
     Active Substance: BOSUTINIB MONOHYDRATE
     Dosage: 200 MG OD FOR 5 DAYS THEN 300 MG OD FOR 6 DAYS THEN 400 OD FOR 7 DAYS THEN 500 OD X1 MONTH
     Route: 048
  2. BOSULIF [Suspect]
     Active Substance: BOSUTINIB MONOHYDRATE
     Dosage: 200 MG OD FOR 5 DAYS THEN 300 MG OD FOR 6 DAYS THEN 400 OD FOR 7 DAYS THEN 500 OD X1 MONTH
     Route: 048
     Dates: start: 20220409

REACTIONS (1)
  - Condition aggravated [Unknown]
